FAERS Safety Report 15557194 (Version 4)
Quarter: 2019Q1

REPORT INFORMATION
  Report Type: Report from Study
  Country: US (occurrence: US)
  Receive Date: 20181026
  Receipt Date: 20190222
  Transmission Date: 20190417
  Serious: Yes (Hospitalization)
  Sender: FDA-Public Use
  Company Number: US-ACTELION-A-NJ2018-168061

PATIENT
  Age: 69 Year
  Sex: Female

DRUGS (6)
  1. REMODULIN [Concomitant]
     Active Substance: TREPROSTINIL
     Dosage: 5 NG/KG, PER MIN
     Dates: start: 20060216
  2. SILDENAFIL. [Concomitant]
     Active Substance: SILDENAFIL
     Dosage: 20 MG, TID
     Dates: start: 20061003
  3. REVATIO [Concomitant]
     Active Substance: SILDENAFIL CITRATE
  4. TRACLEER [Suspect]
     Active Substance: BOSENTAN
     Indication: PULMONARY ARTERIAL HYPERTENSION
     Dosage: 125 MG, BID
     Route: 048
     Dates: start: 20070509
  5. COUMADIN [Concomitant]
     Active Substance: WARFARIN SODIUM
  6. AMIODARONE [Concomitant]
     Active Substance: AMIODARONE
     Dosage: UNK, QHS

REACTIONS (7)
  - Post procedural complication [Unknown]
  - Coronary artery bypass [Recovered/Resolved]
  - Acute coronary syndrome [Unknown]
  - Catheterisation cardiac [Unknown]
  - Coronary artery disease [Unknown]
  - Atrial flutter [Not Recovered/Not Resolved]
  - Myocardial infarction [Unknown]

NARRATIVE: CASE EVENT DATE: 20181011
